FAERS Safety Report 6102567-4 (Version None)
Quarter: 2009Q1

REPORT INFORMATION
  Report Type: 
  Country: None (occurrence: None)
  Receive Date: 20090304
  Receipt Date: 20080826
  Transmission Date: 20090719
  Serious: No
  Sender: FDA-Public Use
  Company Number: A0744451A

PATIENT
  Sex: Male

DRUGS (5)
  1. REQUIP [Suspect]
     Indication: PARKINSON'S DISEASE
     Dosage: 1TAB PER DAY
     Route: 048
     Dates: start: 20020101
  2. NAPROXIN [Concomitant]
  3. LISINOPRIL [Concomitant]
  4. ALLOPURINOL [Concomitant]
  5. ARTEIN [Concomitant]

REACTIONS (2)
  - NAUSEA [None]
  - PRODUCT QUALITY ISSUE [None]
